FAERS Safety Report 11463502 (Version 2)
Quarter: 2015Q4

REPORT INFORMATION
  Report Type: Spontaneous
  Country: US (occurrence: US)
  Receive Date: 20150831
  Receipt Date: 20151104
  Transmission Date: 20160304
  Serious: No
  Sender: FDA-Public Use
  Company Number: US-ELI_LILLY_AND_COMPANY-US201103005801

PATIENT
  Sex: Female

DRUGS (3)
  1. CYMBALTA [Suspect]
     Active Substance: DULOXETINE HYDROCHLORIDE
  2. FORTEO [Suspect]
     Active Substance: TERIPARATIDE
     Indication: OSTEOPOROSIS
     Dosage: 20 UG, QD
     Dates: start: 201002
  3. FORTEO [Suspect]
     Active Substance: TERIPARATIDE
     Dosage: 20 UG, QD
     Route: 065

REACTIONS (9)
  - Medication error [Unknown]
  - Drug dose omission [Unknown]
  - Pain [Unknown]
  - Stress [Unknown]
  - Contusion [Unknown]
  - Headache [Unknown]
  - Fall [Recovered/Resolved]
  - Musculoskeletal stiffness [Unknown]
  - Feeling abnormal [Unknown]
